FAERS Safety Report 16126362 (Version 1)
Quarter: 2019Q1

REPORT INFORMATION
  Report Type: Spontaneous
  Country: US (occurrence: US)
  Receive Date: 20190328
  Receipt Date: 20190328
  Transmission Date: 20190418
  Serious: No
  Sender: FDA-Public Use
  Company Number: US-009507513-1903USA010632

PATIENT
  Age: 37 Year
  Sex: Male

DRUGS (1)
  1. INTRON A [Suspect]
     Active Substance: INTERFERON ALFA-2B
     Indication: DERMATITIS ATOPIC
     Dosage: (0.57 MILLION INTERNATIONAL UNIT (MIU)), 3 TIMES A WEEK
     Route: 030
     Dates: start: 20190131

REACTIONS (2)
  - Adverse event [Unknown]
  - Influenza like illness [Unknown]

NARRATIVE: CASE EVENT DATE: 20190319
